FAERS Safety Report 9729828 (Version 1)
Quarter: 2013Q4

REPORT INFORMATION
  Report Type: Spontaneous
  Country: GB (occurrence: None)
  Receive Date: 20131203
  Receipt Date: 20131203
  Transmission Date: 20140711
  Serious: Yes (Other)
  Sender: FDA-Public Use
  Company Number: AUR-APL-2013-09890

PATIENT
  Age: 62 Year
  Sex: Male
  Weight: 118 kg

DRUGS (6)
  1. CLOPIDOGREL (CLOPIDOGREL) [Suspect]
     Indication: TRANSIENT ISCHAEMIC ATTACK
     Route: 048
     Dates: start: 20131001, end: 20131010
  2. ASPIRIN (ACETYLSALICYCLIC ACID) [Concomitant]
  3. BICALUMTAMIDE (BICALUTAMIDE) [Concomitant]
  4. SOLIFENACIN [Concomitant]
  5. TAMSULOSIN (TAMSULOSIN) [Concomitant]
  6. TAMOXIFEN [Concomitant]

REACTIONS (1)
  - Dysphagia [None]
